FAERS Safety Report 12723661 (Version 4)
Quarter: 2016Q4

REPORT INFORMATION
  Report Type: Spontaneous
  Country: CA (occurrence: CA)
  Receive Date: 20160908
  Receipt Date: 20161214
  Transmission Date: 20170207
  Serious: Yes (Other)
  Sender: FDA-Public Use
  Company Number: CA-ORION CORPORATION ORION PHARMA-TREX2015-0729

PATIENT
  Sex: Male

DRUGS (18)
  1. XELJANZ [Suspect]
     Active Substance: TOFACITINIB CITRATE
     Indication: RHEUMATOID ARTHRITIS
     Route: 048
     Dates: start: 20150716, end: 201512
  2. XELJANZ [Suspect]
     Active Substance: TOFACITINIB CITRATE
     Route: 048
     Dates: end: 201604
  3. CELEBREX [Suspect]
     Active Substance: CELECOXIB
     Route: 048
     Dates: start: 2016, end: 20160327
  4. XELJANZ [Suspect]
     Active Substance: TOFACITINIB CITRATE
     Route: 048
     Dates: start: 20160913
  5. CELEBREX [Suspect]
     Active Substance: CELECOXIB
     Route: 048
     Dates: start: 201512
  6. CELEBREX [Suspect]
     Active Substance: CELECOXIB
     Route: 048
     Dates: start: 20160223, end: 2016
  7. CELEBREX [Suspect]
     Active Substance: CELECOXIB
     Indication: RHEUMATOID ARTHRITIS
     Route: 048
  8. METHOTREXATE (TRADE NAME UNKNOWN) [Suspect]
     Active Substance: METHOTREXATE
     Indication: RHEUMATOID ARTHRITIS
     Route: 048
     Dates: start: 20150220
  9. CELEBREX [Suspect]
     Active Substance: CELECOXIB
     Route: 048
     Dates: end: 20151215
  10. CELEBREX [Suspect]
     Active Substance: CELECOXIB
     Route: 048
     Dates: start: 20160328
  11. PREDNISONE. [Suspect]
     Active Substance: PREDNISONE
     Indication: RHEUMATOID ARTHRITIS
     Route: 065
  12. PREDNISONE. [Suspect]
     Active Substance: PREDNISONE
     Route: 065
     Dates: end: 20150904
  13. XELJANZ [Suspect]
     Active Substance: TOFACITINIB CITRATE
     Route: 048
     Dates: start: 20160806, end: 20160808
  14. ADVIL [Concomitant]
     Active Substance: IBUPROFEN
     Route: 065
  15. CELEBREX [Suspect]
     Active Substance: CELECOXIB
     Indication: PAIN
     Route: 048
  16. CELEBREX [Suspect]
     Active Substance: CELECOXIB
     Route: 048
  17. PLAQUENIL [Suspect]
     Active Substance: HYDROXYCHLOROQUINE SULFATE
     Indication: RHEUMATOID ARTHRITIS
     Route: 065
     Dates: start: 20150220, end: 20151016
  18. XELJANZ [Suspect]
     Active Substance: TOFACITINIB CITRATE
     Route: 048
     Dates: start: 201604, end: 20160803

REACTIONS (8)
  - Abdominal pain upper [Recovering/Resolving]
  - Constipation [Recovering/Resolving]
  - Rheumatoid arthritis [Recovered/Resolved]
  - Wrist fracture [Recovering/Resolving]
  - Gait disturbance [Not Recovered/Not Resolved]
  - Viral upper respiratory tract infection [Not Recovered/Not Resolved]
  - Fall [Recovering/Resolving]
  - Wound infection [Recovering/Resolving]

NARRATIVE: CASE EVENT DATE: 2015
